FAERS Safety Report 21669191 (Version 1)
Quarter: 2022Q4

REPORT INFORMATION
  Report Type: Spontaneous
  Country: US (occurrence: US)
  Receive Date: 20221201
  Receipt Date: 20221201
  Transmission Date: 20230113
  Serious: Yes (Hospitalization)
  Sender: FDA-Public Use
  Company Number: US-IGSA-BIG0021238

PATIENT
  Age: 56 Year
  Sex: Female

DRUGS (3)
  1. HUMAN IMMUNOGLOBULIN G [Suspect]
     Active Substance: HUMAN IMMUNOGLOBULIN G
     Indication: Immune-mediated myositis
     Dosage: 2 GRAM PER KILOGRAM, UNKNOWN
     Route: 042
  2. HUMAN IMMUNOGLOBULIN G [Suspect]
     Active Substance: HUMAN IMMUNOGLOBULIN G
     Indication: Off label use
  3. MYCOPHENOLATE MOFETIL [Concomitant]
     Active Substance: MYCOPHENOLATE MOFETIL
     Indication: Immune-mediated myositis

REACTIONS (8)
  - Posterior reversible encephalopathy syndrome [Recovering/Resolving]
  - Vision blurred [Recovering/Resolving]
  - Hemiparesis [Recovering/Resolving]
  - Neurologic neglect syndrome [Recovering/Resolving]
  - Visual agnosia [Recovering/Resolving]
  - Disorientation [Recovering/Resolving]
  - Hemihypoaesthesia [Recovering/Resolving]
  - Cerebral infarction [Recovering/Resolving]
